FAERS Safety Report 16956970 (Version 1)
Quarter: 2019Q4

REPORT INFORMATION
  Report Type: Spontaneous
  Country: US (occurrence: US)
  Receive Date: 20191024
  Receipt Date: 20191024
  Transmission Date: 20200122
  Serious: No
  Sender: FDA-Public Use
  Company Number: US-BAYER-2019-190937

PATIENT
  Age: 46 Year
  Sex: Female
  Weight: 59 kg

DRUGS (4)
  1. CLARITIN [Suspect]
     Active Substance: LORATADINE
     Indication: ALLERGIC RESPIRATORY SYMPTOM
     Dosage: 1 DF, QD
     Route: 048
     Dates: start: 201908, end: 20191022
  2. CLARITIN [Suspect]
     Active Substance: LORATADINE
     Indication: NASOPHARYNGITIS
  3. SERTRALINE [Concomitant]
     Active Substance: SERTRALINE HYDROCHLORIDE
  4. ONE A DAY WOMEN^S [Suspect]
     Active Substance: MINERALS\VITAMINS
     Indication: NUTRITIONAL SUPPLEMENTATION
     Dosage: 1 DF, QD
     Route: 048
     Dates: start: 20191003, end: 20191020

REACTIONS (1)
  - Diarrhoea [Recovered/Resolved]

NARRATIVE: CASE EVENT DATE: 20191003
